FAERS Safety Report 18152397 (Version 1)
Quarter: 2020Q3

REPORT INFORMATION
  Report Type: Spontaneous
  Country: CN (occurrence: CN)
  Receive Date: 20200814
  Receipt Date: 20200814
  Transmission Date: 20201103
  Serious: Yes (Hospitalization)
  Sender: FDA-Public Use
  Company Number: CN-BAYER-2020-168315

PATIENT
  Age: 77 Year
  Sex: Female
  Weight: 35 kg

DRUGS (1)
  1. AVELOX [Suspect]
     Active Substance: MOXIFLOXACIN HYDROCHLORIDE
     Indication: ABDOMINAL INFECTION
     Dosage: 400 MG, QD
     Route: 041
     Dates: start: 20200704, end: 20200708

REACTIONS (2)
  - Delirium [Recovering/Resolving]
  - Hepatic function abnormal [Recovering/Resolving]

NARRATIVE: CASE EVENT DATE: 20200707
